FAERS Safety Report 17902929 (Version 1)
Quarter: 2020Q2

REPORT INFORMATION
  Report Type: Report from Study
  Country: SG (occurrence: SG)
  Receive Date: 20200617
  Receipt Date: 20200617
  Transmission Date: 20200714
  Serious: Yes (Other)
  Sender: FDA-Public Use
  Company Number: SG-ROCHE-2587243

PATIENT
  Age: 67 Year
  Sex: Male

DRUGS (2)
  1. XELODA [Concomitant]
     Active Substance: CAPECITABINE
     Indication: COLORECTAL CANCER
     Route: 048
     Dates: start: 201904, end: 201912
  2. AVASTIN [Suspect]
     Active Substance: BEVACIZUMAB
     Indication: COLORECTAL CANCER
     Route: 042
     Dates: start: 201904, end: 201912

REACTIONS (2)
  - Peripheral vascular disorder [Unknown]
  - Injection site pain [Unknown]

NARRATIVE: CASE EVENT DATE: 201912
